FAERS Safety Report 6384305-3 (Version None)
Quarter: 2009Q4

REPORT INFORMATION
  Report Type: 
  Country: None (occurrence: None)
  Receive Date: 20091001
  Receipt Date: 20090921
  Transmission Date: 20100525
  Serious: Yes (Disabling)
  Sender: FDA-Public Use
  Company Number: IT-ELI_LILLY_AND_COMPANY-IT200907004289

PATIENT
  Sex: Male
  Weight: 62 kg

DRUGS (4)
  1. GEMCITABINE HCL [Suspect]
     Indication: PANCREATIC CARCINOMA METASTATIC
     Dosage: 1660 MG, WEEKLY (1/W)
     Route: 042
     Dates: start: 20080619, end: 20080619
  2. OTHER PHARMA COMPANY INV DRUG [Suspect]
     Indication: PANCREATIC CARCINOMA METASTATIC
     Dosage: 10 MG, 2/D
     Route: 048
     Dates: start: 20080619, end: 20080626
  3. DURAGESIC-100 [Concomitant]
     Indication: PAIN
     Dosage: 25 MG, DAILY (1/D)
     Route: 058
     Dates: start: 20090618
  4. TRAMADOL HCL [Concomitant]
     Indication: PAIN
     Dosage: 50 MG, DAILY (1/D)
     Route: 048
     Dates: start: 20080619

REACTIONS (4)
  - COGNITIVE DISORDER [None]
  - CONFUSIONAL STATE [None]
  - DEPRESSION [None]
  - PSYCHOMOTOR RETARDATION [None]
